FAERS Safety Report 13129489 (Version 3)
Quarter: 2017Q1

REPORT INFORMATION
  Report Type: Report from Study
  Country: US (occurrence: US)
  Receive Date: 20170119
  Receipt Date: 20170213
  Transmission Date: 20170428
  Serious: Yes (Other)
  Sender: FDA-Public Use
  Company Number: US-AMGEN-USASL2017007109

PATIENT
  Age: 69 Year
  Sex: Male

DRUGS (1)
  1. ENBREL [Suspect]
     Active Substance: ETANERCEPT
     Indication: ANKYLOSING SPONDYLITIS
     Dosage: UNK
     Route: 065

REACTIONS (11)
  - Atrial fibrillation [Unknown]
  - Seizure [Unknown]
  - Injection site pruritus [Unknown]
  - Spinal operation [Unknown]
  - Oral herpes [Unknown]
  - Psoriasis [Unknown]
  - Cerebrovascular accident [Unknown]
  - Musculoskeletal disorder [Unknown]
  - Infection [Unknown]
  - Intracranial aneurysm [Unknown]
  - Oral disorder [Unknown]

NARRATIVE: CASE EVENT DATE: 201612
